FAERS Safety Report 23931715 (Version 3)
Quarter: 2024Q3

REPORT INFORMATION
  Report Type: Spontaneous
  Country: US (occurrence: US)
  Receive Date: 20240603
  Receipt Date: 20240725
  Transmission Date: 20241017
  Serious: Yes (Other)
  Sender: GLAXOSMITHKLINE
  Company Number: US-GLAXOSMITHKLINE-US2024066991

PATIENT

DRUGS (8)
  1. NUCALA [Suspect]
     Active Substance: MEPOLIZUMAB
     Indication: Asthma
     Dosage: 100 MG/ML
     Dates: start: 2021
  2. ADVAIR HFA [Concomitant]
     Active Substance: FLUTICASONE PROPIONATE\SALMETEROL XINAFOATE
     Indication: Asthma
     Dosage: UNK, 250/50
  3. VENTOLIN [Concomitant]
     Active Substance: ALBUTEROL SULFATE
     Indication: Asthma
     Dosage: UNK
     Dates: start: 2014
  4. MONTELUKAST [Concomitant]
     Active Substance: MONTELUKAST SODIUM
     Indication: Asthma
     Dosage: 10 MG
  5. OZEMPIC [Concomitant]
     Active Substance: SEMAGLUTIDE
     Indication: Diabetes mellitus
     Dosage: UNK, 100
     Dates: start: 2023
  6. JARDIANCE [Concomitant]
     Active Substance: EMPAGLIFLOZIN
     Indication: Diabetes mellitus
     Dosage: 25 MG
     Dates: start: 2023
  7. LEVOTHYROXINE [Concomitant]
     Active Substance: LEVOTHYROXINE\LEVOTHYROXINE SODIUM
     Indication: Thyroid disorder
     Dosage: 13 UG
     Dates: start: 2004
  8. DILTIAZEM [Concomitant]
     Active Substance: DILTIAZEM
     Indication: Hypertension
     Dosage: UNK, 250
     Dates: start: 2004

REACTIONS (4)
  - Pulmonary congestion [Not Recovered/Not Resolved]
  - Hypersensitivity [Not Recovered/Not Resolved]
  - Feeling abnormal [Unknown]
  - Product dose omission issue [Not Recovered/Not Resolved]

NARRATIVE: CASE EVENT DATE: 20240501
